FAERS Safety Report 24653372 (Version 2)
Quarter: 2024Q4

REPORT INFORMATION
  Report Type: Spontaneous
  Country: ES (occurrence: ES)
  Receive Date: 20241122
  Receipt Date: 20241127
  Transmission Date: 20250114
  Serious: Yes (Death)
  Sender: AMERICAN REGENT
  Company Number: ES-AMERICAN REGENT INC-2024004201

PATIENT
  Age: 20 Year
  Sex: Female

DRUGS (2)
  1. FERINJECT [Suspect]
     Active Substance: FERRIC CARBOXYMALTOSE
     Indication: Anaemia of pregnancy
     Dosage: 1000 MG IV TO THE MOTHER (1000 MILLIGRAM, 1 IN 1 TOTAL)
     Route: 042
     Dates: start: 20241008, end: 20241008
  2. PRIMPERAN [Suspect]
     Active Substance: METOCLOPRAMIDE HYDROCHLORIDE
     Indication: Product used for unknown indication
     Dosage: 1 DOSAGE FORMS, 1 IN 1 TOTAL
     Route: 042
     Dates: start: 20241008, end: 20241008

REACTIONS (2)
  - Foetal heart rate abnormal [Fatal]
  - Maternal exposure during pregnancy [Unknown]

NARRATIVE: CASE EVENT DATE: 20241008
